FAERS Safety Report 8200562-2 (Version None)
Quarter: 2012Q1

REPORT INFORMATION
  Report Type: 
  Country: None (occurrence: None)
  Receive Date: 20120306
  Receipt Date: 20120223
  Transmission Date: 20120608
  Serious: Yes (Hospitalization)
  Sender: FDA-Public Use
  Company Number: 2012SP009832

PATIENT
  Age: 50 Year
  Sex: Male
  Weight: 80.7 kg

DRUGS (6)
  1. ASENAPINE (ASENAPINE /05706901/) [Suspect]
     Indication: CONDITION AGGRAVATED
     Dosage: 10 MG;BID;PO
     Route: 048
     Dates: start: 20111116
  2. ASENAPINE (ASENAPINE /05706901/) [Suspect]
     Indication: SCHIZOPHRENIA
     Dosage: 10 MG;BID;PO
     Route: 048
     Dates: start: 20111116
  3. BIPERIDEN HYDROCHLORIDE TAB [Concomitant]
  4. LORAZEPAM [Concomitant]
  5. PROPRANOLOL HYDROCHLORIDE [Concomitant]
  6. ZOPICLONE [Concomitant]

REACTIONS (5)
  - HALLUCINATION, AUDITORY [None]
  - CONDITION AGGRAVATED [None]
  - INSOMNIA [None]
  - SCHIZOPHRENIA [None]
  - ANXIETY [None]
